FAERS Safety Report 6665320-9 (Version None)
Quarter: 2010Q1

REPORT INFORMATION
  Report Type: 
  Country: None (occurrence: None)
  Receive Date: 20100323
  Receipt Date: 20100118
  Transmission Date: 20100710
  Serious: No
  Sender: FDA-Public Use
  Company Number: 100122-0000090

PATIENT
  Sex: Male

DRUGS (1)
  1. SABRIL [Suspect]
     Indication: INFANTILE SPASMS
     Dosage: 250 MG;QD;PO
     Route: 048
     Dates: start: 20091211

REACTIONS (1)
  - BLOOD GLUCOSE DECREASED [None]
